FAERS Safety Report 11528375 (Version 1)
Quarter: 2015Q3

REPORT INFORMATION
  Report Type: Spontaneous
  Country: US (occurrence: US)
  Receive Date: 20150921
  Receipt Date: 20150921
  Transmission Date: 20151125
  Serious: No
  Sender: FDA-Public Use
  Company Number: US-TEVA-522622USA

PATIENT
  Age: 83 Year
  Sex: Male

DRUGS (3)
  1. DEPAKOTE [Concomitant]
     Active Substance: DIVALPROEX SODIUM
  2. CLONAZEPAM. [Suspect]
     Active Substance: CLONAZEPAM
     Route: 065
  3. VIMPAT [Concomitant]
     Active Substance: LACOSAMIDE
     Dosage: 300 MILLIGRAM DAILY;

REACTIONS (1)
  - Hyperkalaemia [Unknown]
